FAERS Safety Report 21532584 (Version 3)
Quarter: 2024Q2

REPORT INFORMATION
  Report Type: Report from Study
  Country: FR (occurrence: FR)
  Receive Date: 20221101
  Receipt Date: 20240506
  Transmission Date: 20240716
  Serious: Yes (Life-Threatening, Hospitalization, Other)
  Sender: FDA-Public Use
  Company Number: FR-EMA-20160810-rpatevhp-130431663

PATIENT
  Age: 30 Year
  Sex: Male
  Weight: 52 kg

DRUGS (37)
  1. AMOXICILLIN\CLAVULANIC ACID [Suspect]
     Active Substance: AMOXICILLIN\CLAVULANIC ACID
     Indication: Tuberculosis
     Dosage: 1500 MILLIGRAM, 3 TIMES A DAY
     Route: 065
  2. AMOXICILLIN\CLAVULANIC ACID [Suspect]
     Active Substance: AMOXICILLIN\CLAVULANIC ACID
     Dosage: 1500 MILLIGRAM, ONCE A DAY
     Route: 065
  3. LINEZOLID [Suspect]
     Active Substance: LINEZOLID
     Indication: Pulmonary tuberculosis
     Dosage: UNK
     Route: 065
     Dates: end: 201509
  4. MIANSERIN [Suspect]
     Active Substance: MIANSERIN
     Indication: Impulsive behaviour
     Dosage: 10 MILLIGRAM, ONCE A DAY
     Route: 048
     Dates: start: 20160408
  5. MIANSERIN [Suspect]
     Active Substance: MIANSERIN
     Indication: Anxiety
  6. AMIKACIN SULFATE [Suspect]
     Active Substance: AMIKACIN SULFATE
     Indication: Tuberculosis
     Dosage: 500 MILLIGRAM, ONCE A DAY
     Route: 042
     Dates: start: 20150828, end: 20150828
  7. AMIKACIN [Suspect]
     Active Substance: AMIKACIN
     Indication: Tuberculosis
     Dosage: 400 MILLIGRAM, EVERY OTHER DAY
     Route: 042
  8. AMIKACIN [Suspect]
     Active Substance: AMIKACIN
     Dosage: UNK(AMIKACIN 1/2 )
     Route: 042
     Dates: start: 20160108
  9. BEDAQUILINE [Suspect]
     Active Substance: BEDAQUILINE
     Indication: Tuberculosis
     Dosage: 600 MILLIGRAM, EVERY WEEK
     Route: 048
     Dates: start: 20150828, end: 20160420
  10. BEDAQUILINE [Suspect]
     Active Substance: BEDAQUILINE
     Indication: Pulmonary tuberculosis
  11. CLOFAZIMINE [Suspect]
     Active Substance: CLOFAZIMINE
     Indication: Pulmonary tuberculosis
     Dosage: UNK
     Route: 065
  12. CYCLOSERINE [Suspect]
     Active Substance: CYCLOSERINE
     Indication: Tuberculosis
     Dosage: 250 MILLIGRAM, ONCE A DAY
     Route: 048
     Dates: start: 20150828
  13. DELAMANID [Interacting]
     Active Substance: DELAMANID
     Indication: Tuberculosis
     Dosage: 200 MILLIGRAM, ONCE A DAY(4 TABLETS )
     Route: 048
     Dates: start: 20151002, end: 20160420
  14. DELAMANID [Suspect]
     Active Substance: DELAMANID
     Indication: Pulmonary tuberculosis
     Dosage: UNK
     Route: 065
  15. IMIPENEM [Suspect]
     Active Substance: IMIPENEM
     Indication: Tuberculosis
     Dosage: 1 GRAM, 3 TIMES A DAY
     Route: 065
  16. MOXIFLOXACIN HYDROCHLORIDE [Suspect]
     Active Substance: MOXIFLOXACIN HYDROCHLORIDE\MOXIFLOXACIN HYDROCHLORIDE MONOHYDRATE
     Indication: Pulmonary tuberculosis
     Dosage: UNK
     Route: 065
     Dates: end: 201509
  17. LAMPRENE [Interacting]
     Active Substance: CLOFAZIMINE
     Indication: Tuberculosis
     Dosage: 100 MILLIGRAM, ONCE A DAY
     Route: 048
     Dates: start: 20150912, end: 20160420
  18. AMINOSALICYLIC ACID [Suspect]
     Active Substance: AMINOSALICYLIC ACID
     Indication: Tuberculosis
     Dosage: 8 GRAM, ONCE A DAY
     Route: 048
     Dates: start: 20150828
  19. PARA-AMINOSALICYLIC ACID [Suspect]
     Active Substance: AMINOSALICYLIC ACID
     Indication: Tuberculosis
     Dosage: 8 GRAM((50 MG TAB))
     Route: 065
     Dates: start: 20150828
  20. SIRTURO [Suspect]
     Active Substance: BEDAQUILINE FUMARATE
     Indication: Pulmonary tuberculosis
     Dosage: 200 MILLIGRAM, 3 TIMES A DAY
     Route: 048
     Dates: start: 20150828, end: 20160420
  21. SIRTURO [Suspect]
     Active Substance: BEDAQUILINE FUMARATE
     Indication: Tuberculosis
  22. CILASTATIN SODIUM\IMIPENEM [Suspect]
     Active Substance: CILASTATIN SODIUM\IMIPENEM
     Indication: Pulmonary tuberculosis
     Dosage: 1 GRAM, 3 TIMES A DAY
     Route: 042
     Dates: start: 20150922
  23. PHLOROGLUCINOL [Concomitant]
     Active Substance: PHLOROGLUCINOL
     Indication: Product used for unknown indication
     Dosage: 240 MILLIGRAM, ONCE A DAY
     Route: 065
  24. PHLOROGLUCINOL [Concomitant]
     Active Substance: PHLOROGLUCINOL
     Dosage: 240 MILLIGRAM, 3 TIMES A DAY (IF NEEDED)
     Route: 065
  25. FERROUS SULFATE [Concomitant]
     Active Substance: FERROUS SULFATE
     Indication: Product used for unknown indication
     Dosage: UNK
     Route: 065
  26. NIACINAMIDE [Concomitant]
     Active Substance: NIACINAMIDE
     Indication: Product used for unknown indication
     Dosage: 1 DOSAGE FORM
     Route: 065
  27. PYRIDOXINE HYDROCHLORIDE\THIAMINE HYDROCHLORIDE [Concomitant]
     Active Substance: PYRIDOXINE HYDROCHLORIDE\THIAMINE HYDROCHLORIDE
     Indication: Product used for unknown indication
     Dosage: 2 DOSAGE FORM, ONCE A DAY
     Route: 065
  28. ESOMEPRAZOLE [Concomitant]
     Active Substance: ESOMEPRAZOLE
     Indication: Product used for unknown indication
     Dosage: DOSAGE FORM: UNSPECIFIED
  29. POTASSIUM CHLORIDE [Concomitant]
     Active Substance: POTASSIUM CHLORIDE
     Indication: Product used for unknown indication
     Dosage: 1200 MILLIGRAM, ONCE A DAY
     Route: 065
  30. RACECADOTRIL [Concomitant]
     Active Substance: RACECADOTRIL
     Indication: Product used for unknown indication
     Dosage: 1 DOSAGE FORM, IF NEEDED
     Route: 065
  31. PRIMPERAN [Concomitant]
     Active Substance: METOCLOPRAMIDE HYDROCHLORIDE
     Indication: Product used for unknown indication
     Dosage: 20 MILLIGRAM, ONCE A DAY(IF NEEDED )
     Route: 065
  32. PRAZEPAM [Concomitant]
     Active Substance: PRAZEPAM
     Indication: Anxiety
     Dosage: 15 DOSAGE FORM (10 DROPS PER DAY, ONLY IF NEEDED)
     Route: 048
  33. PRAZEPAM [Concomitant]
     Active Substance: PRAZEPAM
     Dosage: 10 DOSAGE FORM(10 DROPS PER DAY,  ONLY IF NEEDED )
     Route: 048
     Dates: start: 20151006
  34. MAGNESIUM [Concomitant]
     Active Substance: MAGNESIUM
     Indication: Product used for unknown indication
     Dosage: UNK
     Route: 065
  35. CHOLECALCIFEROL [Concomitant]
     Active Substance: CHOLECALCIFEROL
     Indication: Tuberculosis
     Dosage: 100000 INTERNATIONAL UNIT//14 DAYS
     Route: 065
  36. DAFALGAN [Concomitant]
     Active Substance: ACETAMINOPHEN
     Indication: Product used for unknown indication
     Dosage: UNK(ONLY IF NEEDED)
     Route: 065
  37. THIAMINE HYDROCHLORIDE [Concomitant]
     Active Substance: THIAMINE HYDROCHLORIDE
     Indication: Product used for unknown indication
     Dosage: 2 DOSAGE FORM, ONCE A DAY
     Route: 048

REACTIONS (17)
  - Hyperthyroidism [Unknown]
  - Alanine aminotransferase increased [Unknown]
  - Aspartate aminotransferase increased [Unknown]
  - Cardiac neoplasm unspecified [Recovered/Resolved]
  - Dizziness [Unknown]
  - Electrocardiogram QT prolonged [Unknown]
  - Tuberculosis [Unknown]
  - Syncope [Unknown]
  - Tinnitus [Not Recovered/Not Resolved]
  - Abdominal pain [Not Recovered/Not Resolved]
  - Ageusia [Recovered/Resolved]
  - Drug interaction [Unknown]
  - Intracardiac mass [Recovered/Resolved]
  - Benign soft tissue neoplasm [Recovered/Resolved]
  - Fibroma [Recovered/Resolved]
  - Long QT syndrome [Unknown]
  - Off label use [Unknown]

NARRATIVE: CASE EVENT DATE: 20150901
